FAERS Safety Report 8485951-3 (Version None)
Quarter: 2012Q3

REPORT INFORMATION
  Report Type: 
  Country: None (occurrence: None)
  Receive Date: 20120703
  Receipt Date: 20120625
  Transmission Date: 20120928
  Serious: Yes (Hospitalization)
  Sender: FDA-Public Use
  Company Number: GB-BRISTOL-MYERS SQUIBB COMPANY-13278478

PATIENT
  Age: 61 Year
  Sex: Female

DRUGS (10)
  1. TRAMADOL HCL [Concomitant]
  2. MAGNESIUM CHLORIDE [Concomitant]
  3. DOMPERIDONE [Concomitant]
  4. ERBITUX [Suspect]
     Indication: NON-SMALL CELL LUNG CANCER
     Route: 041
     Dates: start: 20051228
  5. CISPLATIN [Suspect]
     Indication: NON-SMALL CELL LUNG CANCER
     Route: 042
     Dates: start: 20051228
  6. CYCLIZINE [Concomitant]
  7. VENTOLIN [Concomitant]
  8. GRANISETRON [Concomitant]
  9. POTASSIUM CHLORIDE [Concomitant]
  10. VINORELBINE [Suspect]
     Indication: NON-SMALL CELL LUNG CANCER
     Route: 042
     Dates: start: 20051228

REACTIONS (3)
  - NAUSEA [None]
  - DEHYDRATION [None]
  - PAIN [None]
